FAERS Safety Report 11092559 (Version 2)
Quarter: 2015Q2

REPORT INFORMATION
  Report Type: Spontaneous
  Country: CL (occurrence: CL)
  Receive Date: 20150506
  Receipt Date: 20150518
  Transmission Date: 20150821
  Serious: Yes (Hospitalization)
  Sender: FDA-Public Use
  Company Number: CL-TEVA-559735ISR

PATIENT
  Age: 34 Year
  Sex: Female

DRUGS (5)
  1. AMPICILLIN [Concomitant]
     Active Substance: AMPICILLIN
     Indication: ANTIBIOTIC THERAPY
     Dosage: 4 GRAM DAILY; 1G EVERY 6 HOURS FOR 3 DAYS
     Route: 065
  2. METRONIDAZOLE. [Suspect]
     Active Substance: METRONIDAZOLE
     Indication: LIVER ABSCESS
     Dosage: TOTAL DOSE OF 73.5G
     Route: 065
  3. CEFTRIAXONE. [Concomitant]
     Active Substance: CEFTRIAXONE
     Indication: ANTIBIOTIC THERAPY
     Dosage: 2 GRAM DAILY; 2G PER DAY FOR 29 DAYS
     Route: 065
  4. LINEZOLID. [Concomitant]
     Active Substance: LINEZOLID
     Indication: ANTIBIOTIC THERAPY
     Dosage: 1200 MILLIGRAM DAILY; 600MG EVERY 12 HOURS FOR 15 DAYS
     Route: 065
  5. CIPROFLOXACIN. [Concomitant]
     Active Substance: CIPROFLOXACIN
     Indication: ANTIBIOTIC THERAPY
     Dosage: 1500 MILLIGRAM DAILY; 750MG EVERY 12 HOURS FOR 20 DAYS
     Route: 065

REACTIONS (2)
  - Cerebellar syndrome [Recovering/Resolving]
  - Neuropathy peripheral [Recovering/Resolving]
